FAERS Safety Report 12749960 (Version 3)
Quarter: 2016Q4

REPORT INFORMATION
  Report Type: Spontaneous
  Country: US (occurrence: US)
  Receive Date: 20160915
  Receipt Date: 20161025
  Transmission Date: 20170207
  Serious: Yes (Death, Hospitalization, Other)
  Sender: FDA-Public Use
  Company Number: US-ASTELLAS-2016US018371

PATIENT
  Age: 84 Year
  Sex: Male

DRUGS (1)
  1. XTANDI [Suspect]
     Active Substance: ENZALUTAMIDE
     Indication: PROSTATE CANCER
     Route: 048

REACTIONS (13)
  - Diarrhoea [Unknown]
  - Death [Fatal]
  - Fall [Unknown]
  - Skin exfoliation [Unknown]
  - Confusional state [Unknown]
  - Thinking abnormal [Unknown]
  - Mental status changes [Unknown]
  - Fatigue [Unknown]
  - Cerebrovascular accident [Unknown]
  - Dysarthria [Unknown]
  - Bladder disorder [Not Recovered/Not Resolved]
  - Movement disorder [Unknown]
  - General physical health deterioration [Unknown]

NARRATIVE: CASE EVENT DATE: 20160907
